FAERS Safety Report 5599318-9 (Version None)
Quarter: 2008Q1

REPORT INFORMATION
  Report Type: 
  Country: None (occurrence: None)
  Receive Date: 20080117
  Receipt Date: 20080109
  Transmission Date: 20080703
  Serious: Yes (Other)
  Sender: FDA-Public Use
  Company Number: 2008AL000195

PATIENT
  Age: 16 Year
  Sex: Male

DRUGS (1)
  1. FEVERALL [Suspect]
     Indication: HEADACHE
     Dosage: 1 GM; QD; PO
     Route: 048

REACTIONS (1)
  - HYPERSENSITIVITY [None]
